FAERS Safety Report 17325784 (Version 2)
Quarter: 2020Q1

REPORT INFORMATION
  Report Type: Spontaneous
  Country: US (occurrence: US)
  Receive Date: 20200127
  Receipt Date: 20200225
  Transmission Date: 20200409
  Serious: Yes (Hospitalization)
  Sender: FDA-Public Use
  Company Number: US-PERRIGO-20US000839

PATIENT
  Age: 66 Year
  Sex: Female
  Weight: 54.42 kg

DRUGS (3)
  1. RANITIDINE HYDROCHLORIDE. [Suspect]
     Active Substance: RANITIDINE HYDROCHLORIDE
     Indication: GASTROOESOPHAGEAL REFLUX DISEASE
     Dosage: 75 MG, BID
     Route: 048
     Dates: start: 20140101, end: 20190920
  2. CHOLESTYRAMINE. [Concomitant]
     Active Substance: CHOLESTYRAMINE
     Indication: BLOOD CHOLESTEROL ABNORMAL
     Dosage: UNKNOWN, UNKNOWN
     Route: 048
     Dates: start: 2008
  3. RANITIDINE HYDROCHLORIDE. [Suspect]
     Active Substance: RANITIDINE HYDROCHLORIDE
     Dosage: 75 MG, BID
     Route: 048
     Dates: start: 20140101, end: 20190920

REACTIONS (9)
  - Abdominal discomfort [Unknown]
  - Diarrhoea [Unknown]
  - Nausea [Unknown]
  - Abdominal pain upper [Unknown]
  - Amylase increased [Unknown]
  - Lipase increased [Unknown]
  - Incorrect product administration duration [Recovered/Resolved]
  - Duodenal ulcer [Recovering/Resolving]
  - Abdominal distension [Unknown]

NARRATIVE: CASE EVENT DATE: 20140115
